FAERS Safety Report 4440561-X (Version None)
Quarter: 2004Q3

REPORT INFORMATION
  Report Type: 
  Country: None (occurrence: None)
  Receive Date: 20040903
  Receipt Date: 20040806
  Transmission Date: 20050211
  Serious: Yes (Hospitalization)
  Sender: FDA-Public Use
  Company Number: US-ROCHE-376883

PATIENT
  Sex: Male

DRUGS (3)
  1. PEG-INTERFERON ALFA 2A (RO 25-8310) [Suspect]
     Indication: HEPATITIS C
     Route: 065
  2. RIBAVIRIN [Suspect]
     Indication: HEPATITIS C
     Route: 048
  3. BLINDED POLYENYLPHOSPHATIDYLCHOLINE [Suspect]
     Indication: HEPATITIS C
     Dosage: FORMULATION REPORTED AS CHEWABLE TABLETS.
     Route: 048

REACTIONS (3)
  - CHOLELITHIASIS [None]
  - DEHYDRATION [None]
  - WEIGHT DECREASED [None]
